FAERS Safety Report 4551248-7 (Version None)
Quarter: 2005Q1

REPORT INFORMATION
  Report Type: 
  Country: None (occurrence: None)
  Receive Date: 20050111
  Receipt Date: 20050111
  Transmission Date: 20050727
  Serious: Yes (Other)
  Sender: FDA-Public Use
  Company Number: None

PATIENT
  Sex: Female
  Weight: 67.1324 kg

DRUGS (2)
  1. GABAPENTIN GENERIC [Suspect]
     Indication: DIABETES MELLITUS
     Dosage: 300 MG PO TID
     Route: 048
     Dates: start: 20040901
  2. GABAPENTIN GENERIC [Suspect]
     Indication: NEUROPATHIC PAIN
     Dosage: 300 MG PO TID
     Route: 048
     Dates: start: 20040901

REACTIONS (5)
  - EPISTAXIS [None]
  - LETHARGY [None]
  - NAUSEA [None]
  - PHARMACEUTICAL PRODUCT COMPLAINT [None]
  - VOMITING [None]
